FAERS Safety Report 21499462 (Version 1)
Quarter: 2022Q4

REPORT INFORMATION
  Report Type: Spontaneous
  Country: US (occurrence: None)
  Receive Date: 20221024
  Receipt Date: 20221024
  Transmission Date: 20230113
  Serious: Yes (Other)
  Sender: FDA-Public Use
  Company Number: None

PATIENT
  Age: 72 Year
  Sex: Female
  Weight: 52.7 kg

DRUGS (1)
  1. AXICABTAGENE CILOLEUCEL [Suspect]
     Active Substance: AXICABTAGENE CILOLEUCEL
     Indication: Diffuse large B-cell lymphoma
     Dosage: FREQUENCY : ONCE;?
     Route: 042
     Dates: start: 20220919, end: 20220919

REACTIONS (6)
  - Infusion related reaction [None]
  - Neutropenia [None]
  - Asthenia [None]
  - Pyrexia [None]
  - Headache [None]
  - Neurotoxicity [None]

NARRATIVE: CASE EVENT DATE: 20220919
